FAERS Safety Report 10592998 (Version 1)
Quarter: 2014Q4

REPORT INFORMATION
  Report Type: Spontaneous
  Country: CH (occurrence: CH)
  Receive Date: 20141119
  Receipt Date: 20141119
  Transmission Date: 20150529
  Serious: Yes (Life-Threatening)
  Sender: FDA-Public Use
  Company Number: CH-PFIZER INC-2014313876

PATIENT
  Age: 60 Year
  Sex: Female

DRUGS (10)
  1. DOXORUBICIN HCL [Suspect]
     Active Substance: DOXORUBICIN HYDROCHLORIDE
     Indication: DIFFUSE LARGE B-CELL LYMPHOMA
     Dosage: 90 MG, ON DAY 1, EVERY 3 WEEKS, CYCLIC
     Route: 041
     Dates: start: 20140514
  2. CYCLOPHOSPHAMIDE. [Suspect]
     Active Substance: CYCLOPHOSPHAMIDE
     Indication: DIFFUSE LARGE B-CELL LYMPHOMA
     Dosage: 1350 MG, ON DAY 1, EVERY 3 WEEKS, CYCLIC
     Route: 041
     Dates: start: 20140514
  3. STILNOX [Concomitant]
     Active Substance: ZOLPIDEM TARTRATE
     Dosage: DOSE NOT SPECIFIED
     Route: 048
  4. MABTHERA [Suspect]
     Active Substance: RITUXIMAB
     Indication: DIFFUSE LARGE B-CELL LYMPHOMA
     Dosage: 675 MG, ON DAY 1, EVERY 3 WEEKS, CYCLIC
     Route: 041
     Dates: start: 20140514
  5. ONDANSETRON [Concomitant]
     Active Substance: ONDANSETRON
     Dosage: 8 MG, EVERY 3 WEEKS, ADMINISTERED PRIOR TO EVERY CHEMOTHERAPY CYCLE
     Route: 040
  6. VINCRISTINE SULFATE. [Interacting]
     Active Substance: VINCRISTINE SULFATE
     Indication: DIFFUSE LARGE B-CELL LYMPHOMA
     Dosage: 2 MG,  ON DAY 1, EVERY 3 WEEKS, CYCLIC
     Route: 041
     Dates: start: 20140603
  7. PREDNISON [Concomitant]
     Active Substance: PREDNISONE
     Indication: DIFFUSE LARGE B-CELL LYMPHOMA
     Dosage: 70 MG, 1X/DAY, ADMINISTERED FROM DAY 1-5 OF EVERY CYCLE
     Route: 048
     Dates: start: 20140514, end: 20140518
  8. EUTHYROX [Concomitant]
     Active Substance: LEVOTHYROXINE SODIUM
     Indication: SECONDARY HYPOTHYROIDISM
     Dosage: DOSE NOT SPECIFIED
     Route: 048
  9. CITALOPRAM [Concomitant]
     Active Substance: CITALOPRAM HYDROBROMIDE
     Indication: BIPOLAR DISORDER
     Dosage: DOSE NOT SPECIFIED
     Route: 048
  10. RIMIFON [Interacting]
     Active Substance: ISONIAZID
     Indication: TUBERCULOSIS
     Dosage: 150 MG, 2X/DAY
     Route: 048
     Dates: start: 20140521

REACTIONS (3)
  - Drug interaction [Recovered/Resolved]
  - Neutropenia [Recovered/Resolved]
  - Agranulocytosis [Recovered/Resolved]

NARRATIVE: CASE EVENT DATE: 20140603
